FAERS Safety Report 18595764 (Version 1)
Quarter: 2020Q4

REPORT INFORMATION
  Report Type: Spontaneous
  Country: US (occurrence: US)
  Receive Date: 20201030
  Receipt Date: 20201030
  Transmission Date: 20210114
  Serious: No
  Sender: FDA-Public Use
  Company Number: None

PATIENT
  Age: 6 Decade
  Sex: Male

DRUGS (2)
  1. AZITHROMYCIN ANHYDROUS. [Suspect]
     Active Substance: AZITHROMYCIN ANHYDROUS
  2. HYDROXYCHLOROQUINE [Suspect]
     Active Substance: HYDROXYCHLOROQUINE
     Indication: COVID-19
     Dates: start: 2020

REACTIONS (15)
  - Stenotrophomonas infection [None]
  - Blood albumin decreased [None]
  - BK polyomavirus test positive [None]
  - Viral test positive [None]
  - Fluid overload [None]
  - Pneumonia [None]
  - Respiratory distress [None]
  - Malnutrition [None]
  - Intentional product use issue [None]
  - Pneumonia klebsiella [None]
  - Perinephric collection [None]
  - Productive cough [None]
  - Staphylococcal infection [None]
  - Haemodialysis [None]
  - Enterococcus test positive [None]
